FAERS Safety Report 7509815-4 (Version None)
Quarter: 2011Q2

REPORT INFORMATION
  Report Type: 
  Country: None (occurrence: None)
  Receive Date: 20110527
  Receipt Date: 20110426
  Transmission Date: 20111010
  Serious: Yes (Other)
  Sender: FDA-Public Use
  Company Number: A0925362A

PATIENT
  Age: 52 Year
  Sex: Female
  Weight: 68.2 kg

DRUGS (4)
  1. CONCERTA [Concomitant]
     Dosage: 36MG PER DAY
     Route: 048
     Dates: start: 20101101
  2. LAMICTAL [Suspect]
     Indication: BIPOLAR II DISORDER
     Dosage: 100MG PER DAY
     Route: 048
     Dates: start: 20110201, end: 20110301
  3. DOXYCYCLINE [Suspect]
     Indication: MALARIA PROPHYLAXIS
     Route: 048
     Dates: start: 20110301, end: 20110301
  4. LORAZEPAM [Concomitant]
     Indication: ANXIETY
     Dosage: .5MG PER DAY
     Route: 048
     Dates: start: 20101101

REACTIONS (2)
  - DRUG HYPERSENSITIVITY [None]
  - DERMATITIS BULLOUS [None]
